FAERS Safety Report 14261799 (Version 2)
Quarter: 2018Q2

REPORT INFORMATION
  Report Type: Spontaneous
  Country: US (occurrence: US)
  Receive Date: 20171208
  Receipt Date: 20180502
  Transmission Date: 20180711
  Serious: No
  Sender: FDA-Public Use
  Company Number: US-009507513-1711USA009851

PATIENT
  Age: 17 Year
  Sex: Female
  Weight: 62.8 kg

DRUGS (1)
  1. NEXPLANON [Suspect]
     Active Substance: ETONOGESTREL
     Dosage: 1 IMPLANT IN THE LEFT ARM
     Route: 059
     Dates: start: 201304, end: 20171023

REACTIONS (9)
  - Implant site pain [Unknown]
  - Complication of device removal [Recovered/Resolved]
  - Device deployment issue [Recovered/Resolved]
  - Implant site hypoaesthesia [Not Recovered/Not Resolved]
  - Vaginal discharge [Unknown]
  - Complication associated with device [Recovered/Resolved]
  - Implant site paraesthesia [Unknown]
  - Incorrect drug administration duration [Unknown]
  - Neuralgia [Unknown]

NARRATIVE: CASE EVENT DATE: 201304
